FAERS Safety Report 6259017-7 (Version None)
Quarter: 2009Q3

REPORT INFORMATION
  Report Type: 
  Country: None (occurrence: None)
  Receive Date: 20090707
  Receipt Date: 20090629
  Transmission Date: 20100115
  Serious: Yes (Other)
  Sender: FDA-Public Use
  Company Number: PHHY2009AU26759

PATIENT
  Sex: Female

DRUGS (1)
  1. GLEEVEC [Suspect]
     Dosage: 400 MG/DAY

REACTIONS (4)
  - GASTROINTESTINAL STROMAL TUMOUR [None]
  - METASTASES TO KIDNEY [None]
  - METASTASES TO LIVER [None]
  - SARCOMA [None]
